FAERS Safety Report 20898123 (Version 2)
Quarter: 2022Q2

REPORT INFORMATION
  Report Type: Spontaneous
  Country: US (occurrence: US)
  Receive Date: 20220531
  Receipt Date: 20220624
  Transmission Date: 20220721
  Serious: Yes (Other)
  Sender: FDA-Public Use
  Company Number: US-009507513-2205USA007263

PATIENT
  Sex: Female
  Weight: 61.678 kg

DRUGS (9)
  1. KEYTRUDA [Suspect]
     Active Substance: PEMBROLIZUMAB
     Indication: Lung adenocarcinoma
     Dosage: EVERY 3 WEEKS
     Route: 042
     Dates: start: 20170404
  2. KEYTRUDA [Suspect]
     Active Substance: PEMBROLIZUMAB
     Dosage: EVERY 3 WEEKS (CYCLE 35)
     Route: 042
     Dates: start: 20190607, end: 20190607
  3. OSCAL [CALCITRIOL] [Concomitant]
  4. CEFIXIME [Concomitant]
     Active Substance: CEFIXIME
  5. DIGOXIN [Concomitant]
     Active Substance: DIGOXIN
  6. ATROVENT [Concomitant]
     Active Substance: IPRATROPIUM BROMIDE
  7. COMBIVENT [Concomitant]
     Active Substance: ALBUTEROL SULFATE\IPRATROPIUM BROMIDE
  8. DUONEB [Concomitant]
     Active Substance: ALBUTEROL SULFATE\IPRATROPIUM BROMIDE
  9. LEVOTHYROXINE [Concomitant]
     Active Substance: LEVOTHYROXINE

REACTIONS (2)
  - Lung adenocarcinoma recurrent [Not Recovered/Not Resolved]
  - Malignant neoplasm progression [Unknown]

NARRATIVE: CASE EVENT DATE: 20220101
